FAERS Safety Report 11211486 (Version 1)
Quarter: 2015Q2

REPORT INFORMATION
  Report Type: Report from Study
  Country: BR (occurrence: BR)
  Receive Date: 20150623
  Receipt Date: 20150623
  Transmission Date: 20150821
  Serious: Yes (Other)
  Sender: FDA-Public Use
  Company Number: PHHY2015BR075312

PATIENT
  Age: 66 Year
  Sex: Female
  Weight: 79 kg

DRUGS (1)
  1. SANDOSTATIN LAR DEPOT [Suspect]
     Active Substance: OCTREOTIDE ACETATE
     Indication: PITUITARY TUMOUR
     Dosage: 2 DF, QMO
     Route: 065

REACTIONS (8)
  - Neoplasm progression [Unknown]
  - Headache [Unknown]
  - Noninfective encephalitis [Unknown]
  - Dizziness postural [Unknown]
  - Tumour compression [Unknown]
  - Somnolence [Unknown]
  - Neoplasm [Unknown]
  - Optic nerve injury [Recovering/Resolving]

NARRATIVE: CASE EVENT DATE: 20150609
